FAERS Safety Report 20245757 (Version 1)
Quarter: 2021Q4

REPORT INFORMATION
  Report Type: Report from Study
  Country: US (occurrence: US)
  Receive Date: 20211229
  Receipt Date: 20211229
  Transmission Date: 20220303
  Serious: No
  Sender: FDA-Public Use
  Company Number: US-Ipsen Biopharmaceuticals, Inc.-2021-33095

PATIENT
  Age: 76 Year

DRUGS (1)
  1. DYSPORT [Suspect]
     Active Substance: ABOBOTULINUMTOXINA
     Indication: Muscle spasticity
     Dosage: FINGER FLEXORS - 300.00?WRIST FLEXORS - 300.00?ELBOW FLEXORS - 300.00?SHOULDER MUSCLES - 300.00
     Route: 065

REACTIONS (2)
  - Therapeutic response shortened [Unknown]
  - Prescribed overdose [Unknown]
